FAERS Safety Report 22064617 (Version 8)
Quarter: 2024Q1

REPORT INFORMATION
  Report Type: Other
  Country: JP (occurrence: JP)
  Receive Date: 20230306
  Receipt Date: 20240322
  Transmission Date: 20240410
  Serious: Yes (Other)
  Sender: FDA-Public Use
  Company Number: JP-CHUGAI-2022011172

PATIENT
  Age: 6 Year
  Sex: Male
  Weight: 10.1 kg

DRUGS (68)
  1. EVRYSDI [Suspect]
     Active Substance: RISDIPLAM
     Indication: Spinal muscular atrophy
     Dates: start: 20220125, end: 20220130
  2. EVRYSDI [Suspect]
     Active Substance: RISDIPLAM
     Dates: start: 20220131, end: 20220214
  3. EVRYSDI [Suspect]
     Active Substance: RISDIPLAM
     Dates: start: 20220215, end: 20220302
  4. EVRYSDI [Suspect]
     Active Substance: RISDIPLAM
     Dates: start: 20220303, end: 20220325
  5. EVRYSDI [Suspect]
     Active Substance: RISDIPLAM
     Dates: start: 20220326, end: 20220621
  6. EVRYSDI [Suspect]
     Active Substance: RISDIPLAM
     Dates: start: 20220622, end: 20220802
  7. EVRYSDI [Suspect]
     Active Substance: RISDIPLAM
     Dates: start: 20220803, end: 20221004
  8. EVRYSDI [Suspect]
     Active Substance: RISDIPLAM
     Dates: start: 20221025, end: 20221116
  9. EVRYSDI [Suspect]
     Active Substance: RISDIPLAM
     Dates: start: 20221117, end: 20221207
  10. EVRYSDI [Suspect]
     Active Substance: RISDIPLAM
     Dates: start: 20221208, end: 20221228
  11. EVRYSDI [Suspect]
     Active Substance: RISDIPLAM
     Dates: start: 20221229, end: 20230118
  12. EVRYSDI [Suspect]
     Active Substance: RISDIPLAM
     Dates: start: 20230119
  13. EVRYSDI [Suspect]
     Active Substance: RISDIPLAM
     Dates: start: 20230303, end: 20230329
  14. EVRYSDI [Suspect]
     Active Substance: RISDIPLAM
     Dates: start: 20230320, end: 20230408
  15. EVRYSDI [Suspect]
     Active Substance: RISDIPLAM
     Dates: start: 20230409, end: 20230428
  16. EVRYSDI [Suspect]
     Active Substance: RISDIPLAM
     Dates: start: 20230429, end: 20230517
  17. EVRYSDI [Suspect]
     Active Substance: RISDIPLAM
     Dates: start: 20230518, end: 20230606
  18. EVRYSDI [Suspect]
     Active Substance: RISDIPLAM
     Dates: start: 20230607, end: 20230625
  19. EVRYSDI [Suspect]
     Active Substance: RISDIPLAM
     Dates: start: 20230626, end: 20230714
  20. EVRYSDI [Suspect]
     Active Substance: RISDIPLAM
     Dates: start: 20230715, end: 20230802
  21. EVRYSDI [Suspect]
     Active Substance: RISDIPLAM
     Dates: start: 20230803, end: 20230821
  22. EVRYSDI [Suspect]
     Active Substance: RISDIPLAM
     Dates: start: 20230822, end: 20230909
  23. EVRYSDI [Suspect]
     Active Substance: RISDIPLAM
     Dates: start: 20230910, end: 20230928
  24. EVRYSDI [Suspect]
     Active Substance: RISDIPLAM
     Dates: start: 20230929, end: 20231017
  25. EVRYSDI [Suspect]
     Active Substance: RISDIPLAM
     Dates: start: 20231018, end: 20231105
  26. EVRYSDI [Suspect]
     Active Substance: RISDIPLAM
     Dates: start: 20231106, end: 20231123
  27. EVRYSDI [Suspect]
     Active Substance: RISDIPLAM
     Dates: start: 20231124, end: 20231212
  28. EVRYSDI [Suspect]
     Active Substance: RISDIPLAM
     Dates: start: 20231213, end: 20231231
  29. EVRYSDI [Suspect]
     Active Substance: RISDIPLAM
     Dates: start: 20240101, end: 20240119
  30. EVRYSDI [Suspect]
     Active Substance: RISDIPLAM
     Dates: start: 20240120
  31. CARBOCYSTEINE [Concomitant]
     Active Substance: CARBOCYSTEINE
     Dosage: UNK
     Route: 050
  32. MUCOSAL [Concomitant]
     Dosage: UNK
     Route: 050
  33. PETROLATUM [Concomitant]
     Active Substance: PETROLATUM
     Dosage: UNK
     Route: 065
  34. CLARITHROMYCIN [Concomitant]
     Active Substance: CLARITHROMYCIN
     Dosage: UNK
     Route: 050
     Dates: start: 20220125, end: 20220201
  35. REBAMIPIDE [Concomitant]
     Active Substance: REBAMIPIDE
     Dosage: UNK
     Route: 047
     Dates: end: 20220224
  36. ACETYLCYSTEINE [Concomitant]
     Active Substance: ACETYLCYSTEINE
     Dosage: UNK
     Route: 065
  37. AMOXICILLIN\CLAVULANATE POTASSIUM [Concomitant]
     Active Substance: AMOXICILLIN\CLAVULANATE POTASSIUM
     Dosage: UNK
     Route: 050
     Dates: start: 20220131, end: 20220204
  38. AMOXICILLIN\CLAVULANATE POTASSIUM [Concomitant]
     Active Substance: AMOXICILLIN\CLAVULANATE POTASSIUM
     Dosage: UNK
     Dates: start: 20220531, end: 20220606
  39. AMOXICILLIN\CLAVULANATE POTASSIUM [Concomitant]
     Active Substance: AMOXICILLIN\CLAVULANATE POTASSIUM
     Dosage: UNK
     Dates: start: 20221208, end: 20221213
  40. AMOXICILLIN\CLAVULANATE POTASSIUM [Concomitant]
     Active Substance: AMOXICILLIN\CLAVULANATE POTASSIUM
     Dosage: UNK
     Dates: start: 20230107, end: 20230112
  41. AZITHROMYCIN [Concomitant]
     Active Substance: AZITHROMYCIN
     Dosage: UNK
     Route: 050
     Dates: start: 20220217, end: 20220219
  42. CEFACLOR [Concomitant]
     Active Substance: CEFACLOR
     Dosage: UNK
     Route: 050
     Dates: start: 20220225, end: 20220301
  43. HYALURONATE SODIUM [Concomitant]
     Active Substance: HYALURONATE SODIUM
     Dosage: UNK
     Route: 047
  44. LEVOFLOXACIN [Concomitant]
     Active Substance: LEVOFLOXACIN
     Dosage: UNK
     Route: 047
     Dates: end: 20221102
  45. RINDERON VG [Concomitant]
     Active Substance: BETAMETHASONE VALERATE\GENTAMICIN SULFATE
     Dosage: UNK
     Route: 003
  46. ZINC OXIDE [Concomitant]
     Active Substance: ZINC OXIDE
     Dosage: UNK
     Route: 003
     Dates: end: 20221012
  47. CAMPHOR;SULFUR [Concomitant]
     Dosage: UNK
     Route: 065
     Dates: end: 20220131
  48. SOLDEM 3A [Concomitant]
     Active Substance: CARBOHYDRATES\POTASSIUM CHLORIDE\SODIUM CHLORIDE\SODIUM LACTATE
     Dosage: UNK
     Dates: start: 20220204, end: 20220214
  49. SOLDEM 3A [Concomitant]
     Active Substance: CARBOHYDRATES\POTASSIUM CHLORIDE\SODIUM CHLORIDE\SODIUM LACTATE
     Dosage: UNK
     Dates: start: 20220930, end: 20221011
  50. SOLDEM 3A [Concomitant]
     Active Substance: CARBOHYDRATES\POTASSIUM CHLORIDE\SODIUM CHLORIDE\SODIUM LACTATE
     Dosage: UNK
     Dates: start: 20221130, end: 20221208
  51. SOLDEM 3A [Concomitant]
     Active Substance: CARBOHYDRATES\POTASSIUM CHLORIDE\SODIUM CHLORIDE\SODIUM LACTATE
     Dosage: UNK
     Dates: start: 20230414, end: 20230426
  52. SOLDEM 3A [Concomitant]
     Active Substance: CARBOHYDRATES\POTASSIUM CHLORIDE\SODIUM CHLORIDE\SODIUM LACTATE
     Dosage: UNK
     Dates: start: 20230820, end: 20230829
  53. SOLDEM 3A [Concomitant]
     Active Substance: CARBOHYDRATES\POTASSIUM CHLORIDE\SODIUM CHLORIDE\SODIUM LACTATE
     Dosage: UNK
     Dates: start: 20231027, end: 20231030
  54. SOLDEM 3A [Concomitant]
     Active Substance: CARBOHYDRATES\POTASSIUM CHLORIDE\SODIUM CHLORIDE\SODIUM LACTATE
     Dosage: UNK
     Dates: start: 20231207, end: 20231214
  55. SOLDEM 3A [Concomitant]
     Active Substance: CARBOHYDRATES\POTASSIUM CHLORIDE\SODIUM CHLORIDE\SODIUM LACTATE
     Dosage: UNK
     Dates: start: 20231218, end: 20231226
  56. CEFTAZIDIME [Concomitant]
     Active Substance: CEFTAZIDIME
     Dosage: UNK
     Route: 065
     Dates: start: 20220204, end: 20220210
  57. LOCOID [Concomitant]
     Active Substance: HYDROCORTISONE BUTYRATE
     Dosage: UNK
     Route: 003
     Dates: end: 20230102
  58. MIYA-BM [Concomitant]
     Active Substance: CLOSTRIDIUM BUTYRICUM SPORES STRAIN M-55
     Dosage: UNK
     Dates: start: 20220815, end: 20220820
  59. MIYA-BM [Concomitant]
     Active Substance: CLOSTRIDIUM BUTYRICUM SPORES STRAIN M-55
     Dosage: UNK
     Dates: start: 20220930
  60. ZOSYN [Concomitant]
     Active Substance: PIPERACILLIN SODIUM\TAZOBACTAM SODIUM
     Dosage: UNK
     Route: 065
     Dates: start: 20220210, end: 20220214
  61. SODIUM PICOSULFATE [Concomitant]
     Active Substance: SODIUM PICOSULFATE
     Dosage: UNK
     Route: 050
     Dates: start: 20221012, end: 20221208
  62. MOSAPRIDE CITRATE [Concomitant]
     Active Substance: MOSAPRIDE CITRATE
     Dosage: UNK
     Route: 050
     Dates: start: 20221124
  63. U-PASTA [Concomitant]
     Dosage: UNK
     Route: 003
     Dates: start: 20221227
  64. SILVER NITRATE [Concomitant]
     Active Substance: SILVER NITRATE
     Dosage: UNK
     Dates: start: 20230309, end: 20230309
  65. CALONAL [Concomitant]
     Active Substance: ACETAMINOPHEN
     Dosage: UNK
     Dates: start: 20231026, end: 20231031
  66. OSELTAMIVIR PHOSPHATE [Concomitant]
     Active Substance: OSELTAMIVIR PHOSPHATE
     Dosage: UNK
     Dates: start: 20231028, end: 20231101
  67. AMOXICILLIN [Concomitant]
     Active Substance: AMOXICILLIN
     Dosage: UNK
     Dates: start: 20231219, end: 20231226
  68. CEFCAPENE PIVOXIL HYDROCHLORIDE [Concomitant]
     Active Substance: CEFCAPENE PIVOXIL HYDROCHLORIDE
     Dosage: UNK
     Dates: start: 20240107, end: 20240108

REACTIONS (6)
  - Gastrointestinal motility disorder [Recovering/Resolving]
  - Respiratory tract infection [Recovered/Resolved]
  - Bronchitis [Recovering/Resolving]
  - Tachycardia [Recovered/Resolved]
  - Myocarditis [Recovered/Resolved]
  - Gastric residual increased [Recovered/Resolved]

NARRATIVE: CASE EVENT DATE: 20220125
